FAERS Safety Report 8489551-0 (Version None)
Quarter: 2012Q3

REPORT INFORMATION
  Report Type: 
  Country: None (occurrence: None)
  Receive Date: 20120705
  Receipt Date: 20120702
  Transmission Date: 20120928
  Serious: No
  Sender: FDA-Public Use
  Company Number: US-PFIZER INC-2012127100

PATIENT
  Sex: Male
  Weight: 79.365 kg

DRUGS (4)
  1. INSULIN [Concomitant]
     Indication: TYPE 2 DIABETES MELLITUS
     Dosage: 20 IU, DAILY
  2. SUTENT [Suspect]
     Dosage: 50 MG, 1X/DAY
     Route: 048
     Dates: start: 20120618
  3. SUTENT [Suspect]
     Indication: RENAL CANCER STAGE IV
     Dosage: 50 MG, DAILY 4 WKS ON, 2 WKS OFF
     Route: 048
     Dates: start: 20120507, end: 20120524
  4. LYRICA [Concomitant]
     Indication: NEUROPATHY PERIPHERAL
     Dosage: 600 MG, 1X/DAY EVERY EVENING

REACTIONS (1)
  - PALMAR-PLANTAR ERYTHRODYSAESTHESIA SYNDROME [None]
